FAERS Safety Report 23787652 (Version 1)
Quarter: 2024Q2

REPORT INFORMATION
  Report Type: Spontaneous
  Country: FR (occurrence: FR)
  Receive Date: 20240426
  Receipt Date: 20240426
  Transmission Date: 20240716
  Serious: Yes (Other)
  Sender: FDA-Public Use
  Company Number: FR-VELOXISUB-2017VELFR0527

PATIENT
  Age: 6 Year
  Sex: Female

DRUGS (16)
  1. MYCOPHENOLATE MOFETIL [Suspect]
     Active Substance: MYCOPHENOLATE MOFETIL
     Indication: Liver transplant
     Dosage: UNK
     Route: 065
  2. MYCOPHENOLATE MOFETIL [Suspect]
     Active Substance: MYCOPHENOLATE MOFETIL
     Indication: Immunosuppressant drug therapy
  3. TACROLIMUS [Suspect]
     Active Substance: TACROLIMUS
     Indication: Liver transplant
     Dosage: UNK(2?4 ?G/L
     Route: 065
  4. TACROLIMUS [Suspect]
     Active Substance: TACROLIMUS
     Indication: Immunosuppressant drug therapy
     Dosage: 0.2 MILLIGRAM, TWO TIMES A DAY
     Route: 065
  5. BASILIXIMAB [Suspect]
     Active Substance: BASILIXIMAB
     Indication: Liver transplant
     Dosage: 10 MILLIGRAM ON DAYS 1 AND 4 AFTER FIRST TRANSPLANTATION
     Route: 065
  6. BASILIXIMAB [Suspect]
     Active Substance: BASILIXIMAB
     Indication: Immunosuppressant drug therapy
  7. METHYLPREDNISOLONE [Suspect]
     Active Substance: METHYLPREDNISOLONE
     Indication: Transplant rejection
     Dosage: 10 MILLIGRAM (ONE CORTICOSTEROID PULSE ON DAY 9 OF 2ND TRANSPLANTATION, ON DAY 13, 3 CORTICOSTEROID
     Route: 048
  8. METHYLPREDNISOLONE [Suspect]
     Active Substance: METHYLPREDNISOLONE
     Dosage: TAPERING OF THE ORAL CORTICOSTEROID
     Route: 048
  9. METHYLPREDNISOLONE [Suspect]
     Active Substance: METHYLPREDNISOLONE
     Dosage: 30 MILLIGRAM/KILOGRAM 3 CORTICOSTEROID PULSES
     Route: 048
  10. CASPOFUNGIN [Concomitant]
     Active Substance: CASPOFUNGIN
     Indication: Antifungal prophylaxis
     Dosage: 30 MG/M2 (25MG) UNTIL 3 DAYS AFTER THE SECOND TRANSPLANT
     Route: 065
  11. CASPOFUNGIN [Concomitant]
     Active Substance: CASPOFUNGIN
     Dosage: 60 MG/M2 (50 MG)ON THE FIRST DAY
     Route: 065
  12. AMPHOTERICIN B [Concomitant]
     Active Substance: AMPHOTERICIN B
     Indication: Product used for unknown indication
     Dosage: 50 MILLIGRAM/KILOGRAM, ONCE A DAY
     Route: 048
  13. FLUCONAZOLE [Concomitant]
     Active Substance: FLUCONAZOLE
     Indication: Antifungal prophylaxis
     Dosage: 3 MILLIGRAM/KILOGRAM, ONCE A DAY
     Route: 042
  14. FLUCONAZOLE [Concomitant]
     Active Substance: FLUCONAZOLE
     Dosage: 7 MILLIGRAM/KILOGRAM, ONCE A DAY
     Route: 048
  15. FLUCONAZOLE [Concomitant]
     Active Substance: FLUCONAZOLE
     Dosage: (100MG TWICE-DAILY OR 8.5MG/KG/D)
     Route: 048
  16. VORICONAZOLE [Concomitant]
     Active Substance: VORICONAZOLE
     Indication: Antifungal prophylaxis
     Dosage: 15 MILLIGRAM/KILOGRAM, ONCE A DAY
     Route: 042

REACTIONS (5)
  - Pulmonary mass [Recovered/Resolved]
  - Liver transplant rejection [Recovered/Resolved]
  - Lung infiltration [Recovered/Resolved]
  - Coccidioidomycosis [Recovered/Resolved]
  - Product administered to patient of inappropriate age [Unknown]
